FAERS Safety Report 10587853 (Version 1)
Quarter: 2014Q4

REPORT INFORMATION
  Report Type: Spontaneous
  Country: FR (occurrence: FR)
  Receive Date: 20141117
  Receipt Date: 20141117
  Transmission Date: 20150529
  Serious: Yes (Hospitalization)
  Sender: FDA-Public Use
  Company Number: FR-SA-2014SA156341

PATIENT
  Age: 83 Year
  Sex: Male

DRUGS (6)
  1. ATENOLOL. [Concomitant]
     Active Substance: ATENOLOL
     Route: 048
     Dates: start: 2012
  2. FOZIRETIC [Suspect]
     Active Substance: FOSINOPRIL SODIUM\HYDROCHLOROTHIAZIDE
     Dosage: STRENGTH: 20 MG/12.5 MG
     Route: 048
     Dates: start: 2012, end: 201407
  3. METFORMIN HYDROCHLORIDE. [Suspect]
     Active Substance: METFORMIN HYDROCHLORIDE
     Route: 048
     Dates: start: 2010, end: 201407
  4. OFLOCET [Suspect]
     Active Substance: OFLOXACIN
     Indication: OSTEOARTHRITIS
     Route: 048
     Dates: start: 20140701, end: 20140706
  5. RIFADINE [Suspect]
     Active Substance: RIFAMPIN
     Indication: OSTEOARTHRITIS
     Route: 048
     Dates: start: 20140701, end: 20140706
  6. GLIMEPIRIDE. [Suspect]
     Active Substance: GLIMEPIRIDE
     Route: 048

REACTIONS (6)
  - Decreased appetite [Recovered/Resolved]
  - Gastrointestinal disorder [Recovered/Resolved]
  - Diarrhoea [Recovered/Resolved]
  - Lactic acidosis [Recovered/Resolved]
  - Vomiting [Recovered/Resolved]
  - Hyponatraemia [Recovered/Resolved]

NARRATIVE: CASE EVENT DATE: 20140705
